FAERS Safety Report 5519241-5 (Version None)
Quarter: 2007Q4

REPORT INFORMATION
  Report Type: 
  Country: None (occurrence: None)
  Receive Date: 20071116
  Receipt Date: 20071107
  Transmission Date: 20080405
  Serious: Yes (Other)
  Sender: FDA-Public Use
  Company Number: DE-AMGEN-US252189

PATIENT
  Sex: Female
  Weight: 78 kg

DRUGS (1)
  1. ENBREL [Suspect]
     Indication: POLYARTHRITIS
     Dosage: UNKNOWN
     Route: 058
     Dates: start: 20060101, end: 20070430

REACTIONS (2)
  - HYPERPHOSPHATASAEMIA [None]
  - ILIUM FRACTURE [None]
